FAERS Safety Report 6773581-0 (Version None)
Quarter: 2010Q2

REPORT INFORMATION
  Report Type: 
  Country: None (occurrence: None)
  Receive Date: 20100614
  Receipt Date: 20081002
  Transmission Date: 20101027
  Serious: Yes (Disabling)
  Sender: FDA-Public Use
  Company Number: 2008-176634-NL

PATIENT
  Age: 29 Year
  Sex: Female

DRUGS (2)
  1. IMPLANON [Suspect]
     Indication: CONTRACEPTION
     Dosage: SC
     Route: 058
     Dates: start: 20071005, end: 20080418
  2. IMPLANON [Suspect]

REACTIONS (9)
  - COMPLICATION OF DEVICE INSERTION [None]
  - COMPLICATION OF DEVICE REMOVAL [None]
  - DRUG INEFFECTIVE [None]
  - HYPOAESTHESIA [None]
  - IATROGENIC INJURY [None]
  - MENOMETRORRHAGIA [None]
  - PERIPHERAL SENSORIMOTOR NEUROPATHY [None]
  - SENSORY LOSS [None]
  - ULNAR NERVE INJURY [None]
